FAERS Safety Report 10483490 (Version 1)
Quarter: 2014Q3

REPORT INFORMATION
  Report Type: Spontaneous
  Country: IT (occurrence: None)
  Receive Date: 20140926
  Receipt Date: 20140926
  Transmission Date: 20150326
  Serious: Yes (Hospitalization)
  Sender: FDA-Public Use
  Company Number: 2539761

PATIENT
  Age: 35 Year
  Sex: Female

DRUGS (1)
  1. CYTARABINE. [Suspect]
     Active Substance: CYTARABINE
     Indication: ACUTE LEUKAEMIA
     Route: 042
     Dates: start: 20140830, end: 20140902

REACTIONS (2)
  - Leukopenia [None]
  - Febrile neutropenia [None]

NARRATIVE: CASE EVENT DATE: 20140908
